FAERS Safety Report 7311996-2 (Version None)
Quarter: 2011Q1

REPORT INFORMATION
  Report Type: 
  Country: None (occurrence: None)
  Receive Date: 20110224
  Receipt Date: 20110210
  Transmission Date: 20110831
  Serious: Yes (Other)
  Sender: FDA-Public Use
  Company Number: US-ROCHE-760061

PATIENT
  Sex: Female

DRUGS (8)
  1. CISPLATIN [Suspect]
     Route: 065
  2. EPIRUBICIN [Suspect]
     Route: 065
  3. HERCEPTIN [Suspect]
     Route: 065
  4. CARBOPLATIN [Suspect]
     Route: 065
  5. DOCETAXEL [Suspect]
     Route: 065
  6. VINORELBINE [Suspect]
     Route: 065
  7. CYCLOPHOSPHAMIDE [Suspect]
     Route: 065
  8. PACLITAXEL [Suspect]
     Route: 065

REACTIONS (1)
  - INJECTION SITE EXTRAVASATION [None]
